FAERS Safety Report 6101082-1 (Version None)
Quarter: 2009Q1

REPORT INFORMATION
  Report Type: 
  Country: None (occurrence: None)
  Receive Date: 20090227
  Receipt Date: 20090212
  Transmission Date: 20090719
  Serious: Yes (Other)
  Sender: FDA-Public Use
  Company Number: 1022556-2009-00008

PATIENT
  Sex: Male

DRUGS (1)
  1. UNISOM [Suspect]
     Dosage: 78 TABS, PO
     Route: 048
     Dates: start: 20060617

REACTIONS (2)
  - INCORRECT DOSE ADMINISTERED [None]
  - MENTAL DISORDER [None]
